FAERS Safety Report 10472193 (Version 1)
Quarter: 2014Q3

REPORT INFORMATION
  Report Type: Spontaneous
  Country: US (occurrence: None)
  Receive Date: 20140923
  Receipt Date: 20140923
  Transmission Date: 20150326
  Serious: Yes (Disabling)
  Sender: FDA-Public Use
  Company Number: None

PATIENT
  Age: 31 Year
  Sex: Female
  Weight: 61.24 kg

DRUGS (1)
  1. SCOPOLAMINE, TRANSDERMAL [Suspect]
     Active Substance: SCOPOLAMINE
     Indication: MOTION SICKNESS
     Dosage: ONE PATCH EVERY 72 HOURS?BEW OATCG/72 HOURS?APPLIED AS MEDICATED PATCH TO SKIN
     Route: 061
     Dates: start: 20140908, end: 20140915

REACTIONS (5)
  - Disorientation [None]
  - Photophobia [None]
  - Activities of daily living impaired [None]
  - Dizziness [None]
  - Migraine [None]

NARRATIVE: CASE EVENT DATE: 20140918
